FAERS Safety Report 4420918-3 (Version None)
Quarter: 2004Q3

REPORT INFORMATION
  Report Type: 
  Country: None (occurrence: None)
  Receive Date: 20040809
  Receipt Date: 20040727
  Transmission Date: 20050211
  Serious: Yes (Life-Threatening, Other)
  Sender: FDA-Public Use
  Company Number: GB-JNJFOC-20040704216

PATIENT
  Sex: Female

DRUGS (10)
  1. DURAGESIC [Suspect]
     Route: 062
  2. DURAGESIC [Suspect]
     Indication: ABDOMINAL PAIN
     Route: 062
  3. LOPERAMIDE HCL [Concomitant]
     Route: 065
  4. CODEINE [Concomitant]
     Route: 065
  5. OMEPRAZOLE [Concomitant]
     Route: 065
  6. SANDO PHOSPHATE [Concomitant]
  7. SANDO PHOSPHATE [Concomitant]
  8. SANDO PHOSPHATE [Concomitant]
  9. PARACETAMOL [Concomitant]
     Dosage: AS NECESSARY
  10. GABAPENTIN [Concomitant]
     Route: 065

REACTIONS (3)
  - COMA [None]
  - STAPHYLOCOCCAL BACTERAEMIA [None]
  - SUPRAVENTRICULAR TACHYCARDIA [None]
